FAERS Safety Report 6387858-4 (Version None)
Quarter: 2009Q4

REPORT INFORMATION
  Report Type: 
  Country: None (occurrence: None)
  Receive Date: 20091005
  Receipt Date: 20090928
  Transmission Date: 20100525
  Serious: Yes (Other)
  Sender: FDA-Public Use
  Company Number: FR-JNJFOC-20090908101

PATIENT
  Sex: Male

DRUGS (9)
  1. RISPERDAL CONSTA [Suspect]
     Indication: DRUG USE FOR UNKNOWN INDICATION
     Route: 030
     Dates: start: 20090514, end: 20090723
  2. MEPRONIZINE [Suspect]
     Route: 048
  3. MEPRONIZINE [Suspect]
     Indication: DRUG USE FOR UNKNOWN INDICATION
     Route: 048
  4. TERALITHE [Suspect]
     Route: 048
  5. TERALITHE [Suspect]
     Indication: DRUG USE FOR UNKNOWN INDICATION
     Route: 048
  6. LOXAPAC [Concomitant]
     Route: 048
  7. LOXAPAC [Concomitant]
     Route: 048
  8. THERALENE [Concomitant]
     Route: 048
  9. THERALENE [Concomitant]
     Route: 048

REACTIONS (2)
  - CYTOLYTIC HEPATITIS [None]
  - TRANSAMINASES INCREASED [None]
